FAERS Safety Report 7267827-2 (Version None)
Quarter: 2011Q1

REPORT INFORMATION
  Report Type: 
  Country: None (occurrence: None)
  Receive Date: 20110201
  Receipt Date: 20110125
  Transmission Date: 20110831
  Serious: Yes (Hospitalization)
  Sender: FDA-Public Use
  Company Number: B0695824A

PATIENT
  Sex: Female

DRUGS (12)
  1. WARFARIN [Concomitant]
     Dosage: 3MG PER DAY
  2. WARFARIN [Concomitant]
     Dosage: 1MG THREE TIMES PER DAY
  3. CALCICHEW D3 [Concomitant]
     Dosage: 2IUAX PER DAY
  4. PARACETAMOL [Concomitant]
     Dosage: 4G PER DAY
     Route: 048
  5. AMOXICILLIN [Suspect]
     Dosage: 750MG PER DAY
     Route: 048
     Dates: start: 20110105, end: 20110105
  6. SERETIDE [Concomitant]
     Dosage: 2IUAX PER DAY
     Route: 055
  7. DIGOXIN [Concomitant]
     Dosage: 125MCG PER DAY
  8. LANSOPRAZOLE [Concomitant]
     Dosage: 30MG PER DAY
     Route: 048
  9. FUROSEMIDE [Concomitant]
     Dosage: 40MG PER DAY
     Route: 048
  10. SIMVASTATIN [Concomitant]
     Dosage: 10MG PER DAY
     Route: 048
  11. LEVOTHYROXINE SODIUM [Concomitant]
     Dosage: 75MCG PER DAY
  12. STRONTIUM RANELATE [Concomitant]
     Dosage: 2G PER DAY

REACTIONS (2)
  - PYREXIA [None]
  - DIARRHOEA [None]
